FAERS Safety Report 9998949 (Version 3)
Quarter: 2014Q2

REPORT INFORMATION
  Report Type: Spontaneous
  Country: AT (occurrence: AT)
  Receive Date: 20140312
  Receipt Date: 20140626
  Transmission Date: 20141212
  Serious: Yes (Hospitalization, Other)
  Sender: FDA-Public Use
  Company Number: AT-ALEXION PHARMACEUTICALS INC.-A201400726

PATIENT
  Sex: 0

DRUGS (21)
  1. SOLIRIS 300MG [Suspect]
     Indication: HAEMOLYTIC URAEMIC SYNDROME
     Dosage: 900 MG, QW
     Route: 042
     Dates: start: 20131114, end: 20131204
  2. SOLIRIS 300MG [Suspect]
     Dosage: 1200 MG, Q2W
     Route: 042
     Dates: start: 20131212, end: 20140113
  3. SOLIRIS 300MG [Suspect]
     Dosage: 900 MG, QW
     Route: 042
     Dates: start: 20140123, end: 20140129
  4. PROGRAF [Concomitant]
     Indication: RENAL TRANSPLANT
     Dosage: UNK, PRN
     Route: 048
     Dates: start: 20131114, end: 20140204
  5. PROGRAF [Concomitant]
     Indication: IMMUNOSUPPRESSION
  6. CELLCEPT                           /01275102/ [Concomitant]
     Indication: RENAL TRANSPLANT
     Dosage: UNK, PRN
     Route: 048
     Dates: start: 20131114, end: 20140204
  7. APREDNISLON [Concomitant]
     Indication: RENAL TRANSPLANT
     Dosage: UNK, PRN
     Route: 048
     Dates: start: 20131114, end: 20140204
  8. PANTOLOC                           /01263204/ [Concomitant]
     Indication: PROPHYLAXIS AGAINST GASTROINTESTINAL ULCER
     Dosage: UNK, PRN
     Route: 048
  9. URIVESC [Concomitant]
     Indication: BLADDER SPASM
     Dosage: UNK, PRN
     Route: 048
     Dates: start: 20131114, end: 20140107
  10. REDUCTO [Concomitant]
     Indication: HYPOPHOSPHATAEMIA
     Dosage: UNK, PRN
     Route: 048
     Dates: start: 20131114, end: 20140204
  11. VALCYTE [Concomitant]
     Indication: ANTIVIRAL PROPHYLAXIS
     Dosage: UNK, PRN
     Route: 048
     Dates: start: 20131114, end: 20140204
  12. CIPROXIN                           /00697201/ [Concomitant]
     Indication: ANTIBIOTIC PROPHYLAXIS
     Dosage: UNK, PRN
     Route: 048
     Dates: start: 20131114, end: 20140204
  13. SELOKEN                            /00376903/ [Concomitant]
     Indication: HYPERTENSION
     Dosage: UNK, PRN
     Route: 048
  14. DOXAZOSIN [Concomitant]
     Indication: HYPERTENSION
     Dosage: UNK, PRN
     Route: 048
  15. BAYPRESS [Concomitant]
     Indication: HYPERTENSION
     Dosage: UNK, PRN
     Route: 048
  16. METOPROLOL SUCCINATE [Concomitant]
     Indication: HYPERTENSION
     Dosage: UNK, PRN
     Route: 048
     Dates: start: 20131129
  17. ZADITEN [Concomitant]
     Indication: CONJUNCTIVITIS ALLERGIC
     Dosage: UNK, PRN
     Route: 047
  18. MYCOSTATIN [Concomitant]
     Indication: ORAL CANDIDIASIS
     Dosage: UNK, PRN
     Route: 048
     Dates: start: 20140212, end: 20140224
  19. KALIORAL                           /00252502/ [Concomitant]
     Indication: HYPOKALAEMIA
     Dosage: UNK, PRN
     Route: 048
  20. URBASON                            /00049601/ [Concomitant]
     Indication: TRANSPLANT REJECTION
     Dosage: UNK, PRN
     Route: 042
     Dates: start: 20140124, end: 20140124
  21. DEXAMETHASONE [Concomitant]
     Indication: PRODUCT USED FOR UNKNOWN INDICATION
     Dosage: UNK, PRN
     Route: 042
     Dates: start: 20131114, end: 20140204

REACTIONS (14)
  - Disease recurrence [Unknown]
  - Proteinuria [Unknown]
  - Procedural hypertension [Unknown]
  - Post procedural complication [Unknown]
  - Paresis [Unknown]
  - Blood creatinine increased [Unknown]
  - Glomerulonephritis [Unknown]
  - Ascites [Unknown]
  - Condition aggravated [Unknown]
  - Platelet count decreased [Unknown]
  - Drug ineffective [Unknown]
  - Thrombotic microangiopathy [Unknown]
  - Oedema [Unknown]
  - Haemolysis [Unknown]
